FAERS Safety Report 4596472-2 (Version None)
Quarter: 2005Q1

REPORT INFORMATION
  Report Type: 
  Country: None (occurrence: None)
  Receive Date: 20050302
  Receipt Date: 20050223
  Transmission Date: 20050727
  Serious: Yes (Other)
  Sender: FDA-Public Use
  Company Number: US-JNJFOC-20050102163

PATIENT
  Sex: Female
  Weight: 104.55 kg

DRUGS (18)
  1. REMICADE [Suspect]
     Route: 042
  2. REMICADE [Suspect]
     Indication: RHEUMATOID ARTHRITIS
     Route: 042
  3. METHOTREXATE [Concomitant]
  4. VOLTAREN [Concomitant]
  5. AMBIEN [Concomitant]
  6. LEXAPRO [Concomitant]
  7. DARVOCET-N 100 [Concomitant]
  8. DARVOCET-N 100 [Concomitant]
  9. MULTI-VITAMIN [Concomitant]
  10. MULTI-VITAMIN [Concomitant]
  11. MULTI-VITAMIN [Concomitant]
  12. MULTI-VITAMIN [Concomitant]
  13. MULTI-VITAMIN [Concomitant]
  14. MULTI-VITAMIN [Concomitant]
  15. MULTI-VITAMIN [Concomitant]
  16. MULTI-VITAMIN [Concomitant]
  17. FISH OIL [Concomitant]
  18. KARIVA [Concomitant]

REACTIONS (7)
  - DIPLOPIA [None]
  - FATIGUE [None]
  - INFUSION RELATED REACTION [None]
  - IRRITABLE BOWEL SYNDROME [None]
  - MUSCLE TWITCHING [None]
  - MYOCLONUS [None]
  - SLEEP DISORDER [None]
